FAERS Safety Report 8011825-8 (Version None)
Quarter: 2011Q4

REPORT INFORMATION
  Report Type: 
  Country: None (occurrence: None)
  Receive Date: 20111228
  Receipt Date: 20111226
  Transmission Date: 20120403
  Serious: Yes (Death)
  Sender: FDA-Public Use
  Company Number: FR-PFIZER INC-2011313189

PATIENT
  Age: 64 Year
  Sex: Male
  Weight: 62.4 kg

DRUGS (2)
  1. PIPERACILLIN AND TAZOBACTAM [Suspect]
     Indication: BACTERAEMIA
     Dosage: 4 G, 2X/DAY
     Route: 042
     Dates: start: 20111114, end: 20111126
  2. CUBICIN [Suspect]
     Indication: BACTERAEMIA
     Dosage: 400 MG, 1X/DAY
     Route: 042
     Dates: start: 20111122, end: 20111126

REACTIONS (2)
  - CEREBRAL HAEMORRHAGE [None]
  - AUTOIMMUNE THROMBOCYTOPENIA [None]
